FAERS Safety Report 6935895-0 (Version None)
Quarter: 2010Q3

REPORT INFORMATION
  Report Type: 
  Country: None (occurrence: None)
  Receive Date: 20100823
  Receipt Date: 20100809
  Transmission Date: 20110219
  Serious: Yes (Other)
  Sender: FDA-Public Use
  Company Number: US-JNJFOC-20050906375

PATIENT
  Sex: Female
  Weight: 61.24 kg

DRUGS (8)
  1. REMICADE [Suspect]
     Indication: RHEUMATOID ARTHRITIS
     Route: 042
  2. REMICADE [Suspect]
     Route: 042
  3. NEURONTON [Concomitant]
  4. CELEBREX [Concomitant]
  5. NIFEDIPINE [Concomitant]
     Indication: RAYNAUD'S PHENOMENON
  6. PLACQUENIL [Concomitant]
  7. PROZAC [Concomitant]
  8. PROVIGIL [Concomitant]

REACTIONS (19)
  - BLOOD PRESSURE DECREASED [None]
  - BLOOD PRESSURE INCREASED [None]
  - DYSARTHRIA [None]
  - DYSPNOEA [None]
  - FALL [None]
  - GAIT DISTURBANCE [None]
  - HEAD INJURY [None]
  - HEADACHE [None]
  - HERPES ZOSTER [None]
  - HYPOAESTHESIA [None]
  - INFUSION RELATED REACTION [None]
  - LOSS OF CONSCIOUSNESS [None]
  - MIGRAINE [None]
  - PARAESTHESIA [None]
  - PNEUMONIA [None]
  - RESPIRATORY TRACT INFECTION [None]
  - SENSATION OF HEAVINESS [None]
  - SKIN BURNING SENSATION [None]
  - VISUAL IMPAIRMENT [None]
